FAERS Safety Report 19397616 (Version 3)
Quarter: 2021Q3

REPORT INFORMATION
  Report Type: Report from Study
  Country: US (occurrence: US)
  Receive Date: 20210610
  Receipt Date: 20210726
  Transmission Date: 20211014
  Serious: No
  Sender: FDA-Public Use
  Company Number: NVSC2021US124885

PATIENT
  Sex: Female

DRUGS (1)
  1. PIQRAY [Suspect]
     Active Substance: ALPELISIB
     Indication: BREAST CANCER
     Dosage: 300 MG, QD
     Route: 048
     Dates: start: 20210520

REACTIONS (4)
  - Pleural effusion [Unknown]
  - Fatigue [Unknown]
  - Diarrhoea [Recovered/Resolved with Sequelae]
  - Dyspnoea [Unknown]
